FAERS Safety Report 8008837-7 (Version None)
Quarter: 2011Q4

REPORT INFORMATION
  Report Type: 
  Country: None (occurrence: None)
  Receive Date: 20111221
  Receipt Date: 20111212
  Transmission Date: 20120403
  Serious: Yes (Other)
  Sender: FDA-Public Use
  Company Number: TPA2011A08387

PATIENT
  Age: 47 Year
  Sex: Female

DRUGS (2)
  1. LISINOPRIL [Concomitant]
  2. ACTOS [Suspect]
     Dosage: 30 MG, 1 IN 1 D, PER ORAL
     Route: 048
     Dates: start: 20091201, end: 20111001

REACTIONS (1)
  - BLADDER CANCER STAGE II [None]
